FAERS Safety Report 10959314 (Version 1)
Quarter: 2015Q1

REPORT INFORMATION
  Report Type: Spontaneous
  Country: US (occurrence: US)
  Receive Date: 20150327
  Receipt Date: 20150327
  Transmission Date: 20150721
  Serious: Yes (Death)
  Sender: FDA-Public Use
  Company Number: US-CIPLA LTD.-2015US02427

PATIENT

DRUGS (6)
  1. CODEINE [Suspect]
     Active Substance: CODEINE
  2. QUININE [Suspect]
     Active Substance: QUININE
  3. CITALOPRAM [Suspect]
     Active Substance: CITALOPRAM HYDROBROMIDE
  4. DOXEPIN [Suspect]
     Active Substance: DOXEPIN
  5. HEROIN [Suspect]
     Active Substance: DIACETYLMORPHINE
  6. TRAZODONE [Suspect]
     Active Substance: TRAZODONE HYDROCHLORIDE

REACTIONS (1)
  - Drug abuse [Fatal]
